FAERS Safety Report 19600651 (Version 1)
Quarter: 2021Q3

REPORT INFORMATION
  Report Type: Report from Study
  Country: US (occurrence: US)
  Receive Date: 20210723
  Receipt Date: 20210723
  Transmission Date: 20211014
  Serious: No
  Sender: FDA-Public Use
  Company Number: US-AGIOS-2107US03018

PATIENT

DRUGS (16)
  1. COLACE [Concomitant]
     Active Substance: DOCUSATE SODIUM
     Dosage: 100 MILLIGRAM, BID
     Route: 048
  2. VITAMIN B12 [Concomitant]
     Active Substance: CYANOCOBALAMIN
     Dosage: UNK, QD
     Route: 048
  3. TEMOZOLOMIDE. [Concomitant]
     Active Substance: TEMOZOLOMIDE
     Dosage: 5 MILLIGRAM, QD
     Route: 048
  4. CLOBEX                             /00012002/ [Concomitant]
     Active Substance: CLOXACILLIN SODIUM
     Dosage: 0.05 PERCENT
  5. MAGNESIUM [Concomitant]
     Active Substance: MAGNESIUM
     Dosage: UNK, QD
     Route: 048
  6. SENNOSIDES A+B [Concomitant]
     Active Substance: SENNOSIDES A AND B
     Dosage: 15 MILLIGRAM, BID
     Route: 048
  7. VITAMIN D                          /00107901/ [Concomitant]
     Active Substance: ERGOCALCIFEROL
     Dosage: UNK, QD
     Route: 048
  8. ZOFRAN [Concomitant]
     Active Substance: ONDANSETRON HYDROCHLORIDE
     Indication: NAUSEA
     Dosage: 8 MILLIGRAM, Q6H PRN
     Route: 048
  9. POTASSIUM CHLORIDE. [Concomitant]
     Active Substance: POTASSIUM CHLORIDE
     Dosage: UNK, QD
     Route: 048
  10. ONDANSETRON [Concomitant]
     Active Substance: ONDANSETRON
     Dosage: 8 MILLIGRAM, EVERY 8 HOURS
     Route: 048
  11. CLARITIN [Concomitant]
     Active Substance: LORATADINE
     Indication: HYPERSENSITIVITY
     Dosage: 10 MILLIGRAM, QD PRN
     Route: 048
  12. PROCHLORPERAZINE. [Concomitant]
     Active Substance: PROCHLORPERAZINE
     Indication: NAUSEA
     Dosage: 10 MILLIGRAM, QD Q6H PRN
     Route: 048
  13. CICLOPIROX. [Concomitant]
     Active Substance: CICLOPIROX
     Dosage: 0.77 PERCENT
     Route: 061
  14. TIBSOVO [Suspect]
     Active Substance: IVOSIDENIB
     Indication: BRAIN NEOPLASM MALIGNANT
     Dosage: 250 MILLIGRAM, 2 TABLETS (500 MG), QD
     Route: 048
  15. TEMOZOLOMIDE. [Concomitant]
     Active Substance: TEMOZOLOMIDE
     Dosage: 140 MG, 3 TABLETS (420 MG), QD
     Route: 048
  16. TRULICITY [Concomitant]
     Active Substance: DULAGLUTIDE
     Dosage: EVERY WEEK
     Route: 058

REACTIONS (2)
  - Product dose omission issue [Unknown]
  - Off label use [Unknown]
